FAERS Safety Report 4303031-5 (Version None)
Quarter: 2004Q1

REPORT INFORMATION
  Report Type: 
  Country: None (occurrence: None)
  Receive Date: 20040224
  Receipt Date: 20040213
  Transmission Date: 20041129
  Serious: Yes (Life-Threatening, Hospitalization)
  Sender: FDA-Public Use
  Company Number: WAES 0402USA01089

PATIENT
  Age: 22 Year
  Sex: Female

DRUGS (2)
  1. INSULIN [Concomitant]
  2. ZOCOR [Suspect]
     Indication: BLOOD CHOLESTEROL INCREASED
     Route: 048
     Dates: start: 19940101, end: 19940101

REACTIONS (2)
  - MYALGIA [None]
  - RENAL FAILURE [None]
